FAERS Safety Report 6071305-6 (Version None)
Quarter: 2009Q1

REPORT INFORMATION
  Report Type: 
  Country: None (occurrence: None)
  Receive Date: 20090202
  Receipt Date: 20080807
  Transmission Date: 20090719
  Serious: Yes (Hospitalization, Other)
  Sender: FDA-Public Use
  Company Number: 2008VX001620

PATIENT
  Age: 55 Year
  Sex: Female

DRUGS (13)
  1. FLUCYTOSINE [Suspect]
     Indication: CRYPTOCOCCOSIS
     Dosage: 6400 MG;QD
     Dates: start: 20061101, end: 20061101
  2. AMPHOTERICIN B [Suspect]
     Indication: CRYPTOCOCCOSIS
     Dosage: 320 MG;QD
     Dates: start: 20061101, end: 20061101
  3. NABUMETONE [Concomitant]
  4. IMIPRAMINE [Concomitant]
  5. ESCITALOPRAM [Concomitant]
  6. BACLOFEN [Concomitant]
  7. ACYCLOVIR [Concomitant]
  8. ESOMEPRAZOLE [Concomitant]
  9. CETIRIZINE [Concomitant]
  10. TOLTERODINE [Concomitant]
  11. MONTELUKAST SODIUM [Concomitant]
  12. TIOTROPIUM [Concomitant]
  13. SALMETEROL [Concomitant]

REACTIONS (7)
  - CARDIAC FAILURE [None]
  - CARDIOMYOPATHY [None]
  - HYPERHIDROSIS [None]
  - HYPOTENSION [None]
  - MENTAL STATUS CHANGES [None]
  - NAUSEA [None]
  - RENAL FAILURE ACUTE [None]
